FAERS Safety Report 5803485-9 (Version None)
Quarter: 2008Q3

REPORT INFORMATION
  Report Type: 
  Country: None (occurrence: None)
  Receive Date: 20080708
  Receipt Date: 20080630
  Transmission Date: 20090109
  Serious: Yes (Hospitalization, Other)
  Sender: FDA-Public Use
  Company Number: PHHY2008JP12862

PATIENT
  Sex: Male
  Weight: 69 kg

DRUGS (15)
  1. SIMULECT [Suspect]
     Indication: RENAL TRANSPLANT
     Dosage: 20 MG, ONCE/SINGLE
     Route: 042
     Dates: start: 20070417, end: 20070417
  2. SIMULECT [Suspect]
     Dosage: 20 MG, ONCE/SINGLE
     Route: 042
     Dates: start: 20070421, end: 20070421
  3. NEORAL [Suspect]
     Indication: RENAL TRANSPLANT
     Dosage: 400 MG/DAY
     Route: 048
     Dates: start: 20070415, end: 20070416
  4. NEORAL [Suspect]
     Dosage: 400 MG/DAY
     Route: 048
     Dates: start: 20070425, end: 20071012
  5. MEDROL [Suspect]
     Indication: RENAL TRANSPLANT
     Dosage: 40 MG/DAY
     Route: 048
     Dates: start: 20070419
  6. CELLCEPT [Suspect]
     Indication: RENAL TRANSPLANT
     Dosage: 1000MG/DAY
     Dates: start: 20070415, end: 20070416
  7. CELLCEPT [Suspect]
     Dosage: 1000 MG/DAY
     Dates: start: 20070419, end: 20070626
  8. SANDIMMUNE [Concomitant]
     Indication: RENAL TRANSPLANT
     Dosage: 140 MG
     Route: 042
     Dates: start: 20070417, end: 20070424
  9. SOLU-MEDROL [Concomitant]
     Indication: RENAL TRANSPLANT
     Dosage: 250 MG
     Route: 042
     Dates: start: 20070417, end: 20070418
  10. BREDININ [Concomitant]
     Indication: RENAL TRANSPLANT
     Dosage: 100 MG
     Route: 048
     Dates: start: 20070711
  11. SULPERAZON [Concomitant]
  12. VANCOMYCIN HYDROCHLORIDE [Concomitant]
  13. POLIGLOBIN N [Concomitant]
  14. DENOSINE [Concomitant]
  15. STEROIDS NOS [Concomitant]

REACTIONS (12)
  - CYTOMEGALOVIRUS ANTIGEN POSITIVE [None]
  - DIARRHOEA [None]
  - GASTROENTERITIS STAPHYLOCOCCAL [None]
  - HISTIOCYTOSIS HAEMATOPHAGIC [None]
  - IMMUNODEFICIENCY [None]
  - PYREXIA [None]
  - RESPIRATORY DISTRESS [None]
  - STAPHYLOCOCCAL INFECTION [None]
  - SURGERY [None]
  - URETERIC ANASTOMOSIS COMPLICATION [None]
  - URINARY TRACT INFLAMMATION [None]
  - VIRAL INFECTION [None]
